FAERS Safety Report 19321072 (Version 2)
Quarter: 2021Q2

REPORT INFORMATION
  Report Type: Report from Study
  Country: CN (occurrence: CN)
  Receive Date: 20210527
  Receipt Date: 20210611
  Transmission Date: 20210717
  Serious: Yes (Hospitalization, Other)
  Sender: FDA-Public Use
  Company Number: CN-GILEAD-2021-0533029

PATIENT
  Age: 64 Year
  Sex: Female

DRUGS (1)
  1. ADEFOVIR DIPIVOXIL. [Suspect]
     Active Substance: ADEFOVIR DIPIVOXIL
     Indication: CHRONIC HEPATITIS B
     Dosage: 10 MG, QD
     Route: 065

REACTIONS (6)
  - Osteoporosis [Recovering/Resolving]
  - Hypophosphataemic osteomalacia [Recovering/Resolving]
  - Fanconi syndrome acquired [Recovering/Resolving]
  - Arthralgia [Recovering/Resolving]
  - Nephropathy toxic [Recovering/Resolving]
  - Abdominal pain upper [Recovering/Resolving]
